FAERS Safety Report 5448169-4 (Version None)
Quarter: 2007Q3

REPORT INFORMATION
  Report Type: 
  Country: None (occurrence: None)
  Receive Date: 20070905
  Receipt Date: 20070823
  Transmission Date: 20080115
  Serious: Yes (Other)
  Sender: FDA-Public Use
  Company Number: GXKR2007CZ07310

PATIENT
  Age: 50 Year
  Sex: Female

DRUGS (1)
  1. WARFARIN SODIUM [Suspect]
     Indication: COAGULOPATHY

REACTIONS (8)
  - CALCINOSIS [None]
  - EXTRASKELETAL OSSIFICATION [None]
  - HAEMATOMA [None]
  - HYSTERECTOMY [None]
  - MUSCLE DISORDER [None]
  - PELVIC HAEMORRHAGE [None]
  - PSEUDOCYST [None]
  - XANTHOMA [None]
